FAERS Safety Report 8027469-8 (Version None)
Quarter: 2012Q1

REPORT INFORMATION
  Report Type: 
  Country: None (occurrence: None)
  Receive Date: 20120104
  Receipt Date: 20111229
  Transmission Date: 20120608
  Serious: Yes (Disabling)
  Sender: FDA-Public Use
  Company Number: 2011AP003121

PATIENT
  Sex: Male

DRUGS (18)
  1. SCOPODERM /00008701/ (HYOSCINE) [Concomitant]
  2. LACTULOSE [Concomitant]
  3. LEVETIRACETAM [Concomitant]
  4. PHENYTOIN [Concomitant]
  5. ABIDEC (KAPSOVIT) [Concomitant]
  6. DOMPERIDONE (DOMPERIDONE) [Concomitant]
  7. OMEPRAZOLE [Concomitant]
  8. AMLODIPINE [Concomitant]
  9. CLARITHROMYCIN [Concomitant]
  10. TRIMETHOPRIM [Concomitant]
  11. PRAVASTATIN [Suspect]
     Indication: HYPERCHOLESTEROLAEMIA
     Dosage: 40 MG
     Dates: end: 20101203
  12. ACETYLSALICYLIC ACID SRT [Concomitant]
  13. IRBESARTAN [Concomitant]
  14. CETRABEN /01690401/ (CETRABEN /01690401/) [Concomitant]
  15. LEVOTHYROXINE SODIUM [Concomitant]
  16. THIAMINE HCL [Concomitant]
  17. GALANTAMINE (GALANTAMINE) [Concomitant]
  18. VITAMIN B COMPLEX /00003501/ (B-KOMPLEX) [Concomitant]

REACTIONS (4)
  - COMMUNICATION DISORDER [None]
  - DYSPHAGIA [None]
  - UNRESPONSIVE TO STIMULI [None]
  - DYSPHONIA [None]
